FAERS Safety Report 8958155 (Version 1)
Quarter: 2012Q4

REPORT INFORMATION
  Report Type: Report from Study
  Country: IN (occurrence: IN)
  Receive Date: 20121211
  Receipt Date: 20121211
  Transmission Date: 20130627
  Serious: Yes (Death)
  Sender: FDA-Public Use
  Company Number: IN-ROCHE-1166732

PATIENT
  Sex: Male
  Weight: 52 kg

DRUGS (2)
  1. BEVACIZUMAB [Suspect]
     Indication: RENAL CELL CARCINOMA
     Route: 042
     Dates: start: 20100608, end: 20110301
  2. INTERFERON ALFA [Suspect]
     Indication: RENAL CELL CARCINOMA
     Dosage: 9 MU
     Route: 058
     Dates: start: 20100608, end: 20110308

REACTIONS (1)
  - Disease progression [Fatal]
